FAERS Safety Report 13092560 (Version 1)
Quarter: 2017Q1

REPORT INFORMATION
  Report Type: Spontaneous
  Country: US (occurrence: US)
  Receive Date: 20170105
  Receipt Date: 20170105
  Transmission Date: 20170428
  Serious: Yes (Other)
  Sender: FDA-Public Use
  Company Number: None

PATIENT
  Age: 67 Year
  Sex: Female

DRUGS (1)
  1. IXABEPILONE [Suspect]
     Active Substance: IXABEPILONE

REACTIONS (10)
  - Infusion related reaction [None]
  - Eye movement disorder [None]
  - Dyspnoea [None]
  - Hypersensitivity [None]
  - Erythema [None]
  - Lethargy [None]
  - Blood pressure increased [None]
  - Dyskinesia [None]
  - Nausea [None]
  - Vomiting [None]

NARRATIVE: CASE EVENT DATE: 20161208
